FAERS Safety Report 6103542-6 (Version None)
Quarter: 2009Q1

REPORT INFORMATION
  Report Type: 
  Country: None (occurrence: None)
  Receive Date: 20090302
  Receipt Date: 20090217
  Transmission Date: 20090719
  Serious: Yes (Other)
  Sender: FDA-Public Use
  Company Number: 2009AP000585

PATIENT
  Age: 47 Year
  Sex: Female

DRUGS (6)
  1. CITALOPRAM HYDROBROMIDE [Suspect]
     Dosage: SEE IMAGE
  2. OLANZAPINE [Concomitant]
  3. NORTRIPTYLINE HCL [Concomitant]
  4. INTERFERON [Concomitant]
  5. RIBAVIRIN [Concomitant]
  6. BUPROPION HCL [Concomitant]

REACTIONS (10)
  - ABDOMINAL PAIN [None]
  - CONDITION AGGRAVATED [None]
  - DEPRESSION [None]
  - DIZZINESS [None]
  - DYSURIA [None]
  - PARANOIA [None]
  - STRABISMUS [None]
  - THERAPY REGIMEN CHANGED [None]
  - TREATMENT NONCOMPLIANCE [None]
  - URINARY RETENTION [None]
